FAERS Safety Report 5606513-9 (Version None)
Quarter: 2008Q1

REPORT INFORMATION
  Report Type: 
  Country: None (occurrence: None)
  Receive Date: 20080129
  Receipt Date: 20080121
  Transmission Date: 20080703
  Serious: Yes (Hospitalization)
  Sender: FDA-Public Use
  Company Number: B0485113A

PATIENT
  Age: 67 Year
  Sex: Female
  Weight: 52 kg

DRUGS (2)
  1. LAPATINIB [Suspect]
     Indication: BREAST CANCER METASTATIC
     Dosage: 1250MG PER DAY
     Route: 048
     Dates: start: 20070714, end: 20070809
  2. CAPECITABINE [Suspect]
     Indication: BREAST CANCER METASTATIC
     Dosage: 3000MG PER DAY
     Route: 048
     Dates: start: 20070714, end: 20070809

REACTIONS (5)
  - ABDOMINAL PAIN UPPER [None]
  - DIVERTICULITIS [None]
  - GASTRIC HAEMORRHAGE [None]
  - HAEMATOCHEZIA [None]
  - PERITONITIS [None]
